FAERS Safety Report 25235879 (Version 1)
Quarter: 2025Q2

REPORT INFORMATION
  Report Type: Spontaneous
  Country: US (occurrence: US)
  Receive Date: 20250424
  Receipt Date: 20250424
  Transmission Date: 20250717
  Serious: Yes (Other)
  Sender: PURDUE
  Company Number: US-NAPPMUNDI-GBR-2021-0091324

PATIENT
  Age: 49 Year
  Sex: Male

DRUGS (19)
  1. HYDROMORPHONE HYDROCHLORIDE [Suspect]
     Active Substance: HYDROMORPHONE HYDROCHLORIDE
     Indication: Stomatitis
     Route: 042
  2. HYDROMORPHONE HYDROCHLORIDE [Suspect]
     Active Substance: HYDROMORPHONE HYDROCHLORIDE
     Indication: Mucosal inflammation
  3. HYDROMORPHONE HYDROCHLORIDE [Suspect]
     Active Substance: HYDROMORPHONE HYDROCHLORIDE
     Indication: Sinus pain
  4. HYDROMORPHONE HYDROCHLORIDE [Suspect]
     Active Substance: HYDROMORPHONE HYDROCHLORIDE
     Indication: Oropharyngeal pain
  5. HYDROMORPHONE HCL [Suspect]
     Active Substance: HYDROMORPHONE HYDROCHLORIDE
     Indication: Stomatitis
     Route: 042
  6. HYDROMORPHONE HCL [Suspect]
     Active Substance: HYDROMORPHONE HYDROCHLORIDE
     Indication: Mucosal inflammation
  7. HYDROMORPHONE HCL [Suspect]
     Active Substance: HYDROMORPHONE HYDROCHLORIDE
     Indication: Sinus pain
  8. HYDROMORPHONE HCL [Suspect]
     Active Substance: HYDROMORPHONE HYDROCHLORIDE
     Indication: Oropharyngeal pain
  9. DEXAMETHASONE [Suspect]
     Active Substance: DEXAMETHASONE
     Indication: Stomatitis
     Route: 042
  10. DEXAMETHASONE [Suspect]
     Active Substance: DEXAMETHASONE
     Indication: Mucosal inflammation
  11. DEXAMETHASONE [Suspect]
     Active Substance: DEXAMETHASONE
     Indication: Sinus pain
  12. DEXAMETHASONE [Suspect]
     Active Substance: DEXAMETHASONE
     Indication: Oropharyngeal pain
  13. KETAMINE [Suspect]
     Active Substance: KETAMINE
     Indication: Mucosal inflammation
     Route: 065
  14. KETAMINE [Suspect]
     Active Substance: KETAMINE
     Indication: Stomatitis
  15. KETAMINE [Suspect]
     Active Substance: KETAMINE
     Indication: Oropharyngeal pain
  16. KETAMINE [Suspect]
     Active Substance: KETAMINE
     Indication: Sinus pain
  17. KETAMINE [Suspect]
     Active Substance: KETAMINE
     Indication: Sinus pain
     Dosage: 5 MG, Q6H PER NOSTRIL
     Route: 045
  18. KETAMINE [Suspect]
     Active Substance: KETAMINE
     Dosage: 5 MG, Q4H PER NOSTRIL
     Route: 045
  19. KETAMINE [Suspect]
     Active Substance: KETAMINE
     Dosage: 10 MG, Q6H PER NOSTRIL
     Route: 045

REACTIONS (8)
  - Delirium [Recovering/Resolving]
  - Neutropenia [Recovering/Resolving]
  - Hallucination, visual [Unknown]
  - Disorientation [Unknown]
  - Somnolence [Unknown]
  - Inadequate analgesia [Recovered/Resolved]
  - Condition aggravated [Recovered/Resolved]
  - Pyrexia [Recovering/Resolving]
